FAERS Safety Report 5428099-4 (Version None)
Quarter: 2007Q3

REPORT INFORMATION
  Report Type: 
  Country: None (occurrence: None)
  Receive Date: 20070828
  Receipt Date: 20070816
  Transmission Date: 20080115
  Serious: Yes (Death, Hospitalization)
  Sender: FDA-Public Use
  Company Number: GB-PFIZER INC-2007069642

PATIENT
  Age: 36 Year
  Sex: Male

DRUGS (4)
  1. IDARUBICIN HCL [Suspect]
     Indication: CHEMOTHERAPY
     Route: 042
  2. CYTARABINE [Suspect]
     Indication: CHEMOTHERAPY
     Route: 042
  3. FILGRASTIM [Suspect]
     Indication: CHEMOTHERAPY
     Route: 058
  4. FLUDARABINE PHOSPHATE [Suspect]
     Indication: CHEMOTHERAPY
     Route: 042

REACTIONS (5)
  - ABDOMINAL DISCOMFORT [None]
  - ACUTE MYELOID LEUKAEMIA [None]
  - FEBRILE NEUTROPENIA [None]
  - MULTI-ORGAN FAILURE [None]
  - NEUTROPENIC SEPSIS [None]
